FAERS Safety Report 9378906 (Version 2)
Quarter: 2013Q3

REPORT INFORMATION
  Report Type: Spontaneous
  Country: US (occurrence: US)
  Receive Date: 20130702
  Receipt Date: 20130801
  Transmission Date: 20140515
  Serious: No
  Sender: FDA-Public Use
  Company Number: US-PFIZER INC-2013193549

PATIENT
  Age: 49 Year
  Sex: Female
  Weight: 97.51 kg

DRUGS (2)
  1. GABAPENTIN [Suspect]
     Indication: CONVULSION
     Dosage: UNK
  2. CARBATROL [Concomitant]
     Dosage: UNK

REACTIONS (2)
  - Epileptic aura [Unknown]
  - Feeling abnormal [Unknown]
